FAERS Safety Report 9169066 (Version 3)
Quarter: 2013Q2

REPORT INFORMATION
  Report Type: Spontaneous
  Country: DE (occurrence: DE)
  Receive Date: 20130318
  Receipt Date: 20130424
  Transmission Date: 20140414
  Serious: Yes (Hospitalization, Other)
  Sender: FDA-Public Use
  Company Number: DE-AMGEN-DEUSP2013017265

PATIENT
  Age: 76 Year
  Sex: Female

DRUGS (2)
  1. PROLIA [Suspect]
     Indication: OSTEOPOROSIS POSTMENOPAUSAL
     Dosage: 60 MG, Q6MO
     Route: 058
     Dates: start: 2009, end: 2012
  2. FORSTEO [Concomitant]
     Dosage: UNK
     Route: 058
     Dates: start: 2005, end: 2011

REACTIONS (4)
  - Bone disorder [Recovering/Resolving]
  - Lumbar vertebral fracture [Unknown]
  - Hypokalaemia [Unknown]
  - Arthralgia [Recovered/Resolved]
